FAERS Safety Report 9365837 (Version 1)
Quarter: 2013Q2

REPORT INFORMATION
  Report Type: Spontaneous
  Country: GB (occurrence: GB)
  Receive Date: 20130625
  Receipt Date: 20130625
  Transmission Date: 20140414
  Serious: Yes (Other)
  Sender: FDA-Public Use
  Company Number: PHFR2013GB000616

PATIENT
  Age: 30 Year
  Sex: Female

DRUGS (4)
  1. CLOZARIL [Suspect]
     Indication: SCHIZOPHRENIA
     Dosage: UNK
     Route: 048
     Dates: start: 20110725
  2. ARIPIPRAZOLE [Concomitant]
     Indication: PSYCHOTIC DISORDER
     Dosage: 20 MG
     Route: 048
  3. LYMECYCLINE [Concomitant]
     Indication: SKIN INFECTION
     Dosage: 408 MG
     Route: 048
     Dates: start: 20130115, end: 20130131
  4. ANTIBIOTICS [Concomitant]
     Dosage: LOW DOSAGE

REACTIONS (2)
  - Groin abscess [Not Recovered/Not Resolved]
  - Differential white blood cell count abnormal [Recovered/Resolved]
